FAERS Safety Report 8146725-6 (Version None)
Quarter: 2012Q1

REPORT INFORMATION
  Report Type: 
  Country: None (occurrence: None)
  Receive Date: 20120217
  Receipt Date: 20110929
  Transmission Date: 20120608
  Serious: No
  Sender: FDA-Public Use
  Company Number: US-ABBOTT-11P-163-0859534-00

PATIENT
  Sex: Male
  Weight: 108.96 kg

DRUGS (1)
  1. SIMCOR [Suspect]
     Indication: BLOOD CHOLESTEROL
     Dosage: 500/20MG AT BEDTIME
     Dates: start: 20110201, end: 20110901

REACTIONS (4)
  - ERYTHEMA [None]
  - PARAESTHESIA [None]
  - FEELING HOT [None]
  - FLUSHING [None]
